FAERS Safety Report 9234155 (Version 4)
Quarter: 2013Q2

REPORT INFORMATION
  Report Type: Report from Study
  Country: DE (occurrence: DE)
  Receive Date: 20130416
  Receipt Date: 20130501
  Transmission Date: 20140414
  Serious: Yes (Hospitalization)
  Sender: FDA-Public Use
  Company Number: DE-ROCHE-1213900

PATIENT
  Age: 48 Year
  Sex: Female

DRUGS (3)
  1. VEMURAFENIB [Suspect]
     Indication: MALIGNANT MELANOMA
     Route: 048
     Dates: start: 20130326
  2. VEMURAFENIB [Suspect]
     Route: 048
     Dates: start: 20130412
  3. PANTOPRAZOLE [Concomitant]
     Route: 065
     Dates: start: 20130405, end: 20130407

REACTIONS (3)
  - Eczema [Recovered/Resolved]
  - Rash maculo-papular [Recovered/Resolved]
  - Pyrexia [Recovered/Resolved]
